FAERS Safety Report 13717217 (Version 1)
Quarter: 2017Q3

REPORT INFORMATION
  Report Type: Spontaneous
  Country: FR (occurrence: FR)
  Receive Date: 20170705
  Receipt Date: 20170705
  Transmission Date: 20171127
  Serious: Yes (Other)
  Sender: FDA-Public Use
  Company Number: FR-SHIRE-FR201714063

PATIENT

DRUGS (3)
  1. KIOVIG [Suspect]
     Active Substance: HUMAN IMMUNOGLOBULIN G
     Indication: NECROTISING MYOSITIS
     Dosage: 5 G
     Route: 042
     Dates: start: 20170619, end: 20170619
  2. PRIVIGEN [Concomitant]
     Active Substance: HUMAN IMMUNOGLOBULIN G
     Indication: NECROTISING MYOSITIS
  3. KIOVIG [Suspect]
     Active Substance: HUMAN IMMUNOGLOBULIN G
     Indication: OFF LABEL USE

REACTIONS (3)
  - Off label use [Unknown]
  - Hypotension [Recovered/Resolved]
  - Extrasystoles [Recovered/Resolved]

NARRATIVE: CASE EVENT DATE: 20170619
